FAERS Safety Report 8780365 (Version 3)
Quarter: 2012Q4

REPORT INFORMATION
  Report Type: Spontaneous
  Country: JP (occurrence: None)
  Receive Date: 20120829
  Receipt Date: 20121011
  Transmission Date: 20130627
  Serious: Yes (Other)
  Sender: FDA-Public Use
  Company Number: PHHY2012JP069745

PATIENT
  Age: 67 Year
  Sex: Male

DRUGS (1)
  1. VISUDYNE [Suspect]
     Indication: CHOROIDAL NEOVASCULARIZATION
     Dates: start: 20071212, end: 20071212

REACTIONS (5)
  - Choroidal neovascularisation [None]
  - Condition aggravated [None]
  - Vitreous adhesions [None]
  - Metamorphopsia [None]
  - Blindness [None]
